FAERS Safety Report 17437634 (Version 1)
Quarter: 2020Q1

REPORT INFORMATION
  Report Type: Report from Study
  Country: US (occurrence: US)
  Receive Date: 20200219
  Receipt Date: 20200219
  Transmission Date: 20200409
  Serious: No
  Sender: FDA-Public Use
  Company Number: NVSC2020US045037

PATIENT
  Sex: Female

DRUGS (1)
  1. COSENTYX [Suspect]
     Active Substance: SECUKINUMAB
     Indication: LARYNGITIS
     Dosage: UNK
     Route: 058

REACTIONS (2)
  - Ill-defined disorder [Unknown]
  - Product use in unapproved indication [Unknown]
